FAERS Safety Report 16346167 (Version 1)
Quarter: 2019Q2

REPORT INFORMATION
  Report Type: Spontaneous
  Country: BR (occurrence: BR)
  Receive Date: 20190523
  Receipt Date: 20190523
  Transmission Date: 20190711
  Serious: Yes (Other)
  Sender: FDA-Public Use
  Company Number: BR-ABBVIE-18P-020-2585826-00

PATIENT
  Sex: Male

DRUGS (16)
  1. DEPAKENE [Suspect]
     Active Substance: VALPROIC ACID
     Indication: DEPRESSION
  2. DEPAKENE [Suspect]
     Active Substance: VALPROIC ACID
     Indication: HYPERHIDROSIS
  3. BUPROPION HYDROCHLORIDE. [Concomitant]
     Active Substance: BUPROPION HYDROCHLORIDE
     Dates: start: 2013
  4. CLONAZEPAM. [Concomitant]
     Active Substance: CLONAZEPAM
     Indication: SLEEP DISORDER
  5. CLONAZEPAM. [Concomitant]
     Active Substance: CLONAZEPAM
     Indication: ANXIETY
  6. BUPROPION HYDROCHLORIDE. [Concomitant]
     Active Substance: BUPROPION HYDROCHLORIDE
     Dates: start: 2013
  7. VALPROIC ACID. [Concomitant]
     Active Substance: VALPROIC ACID
     Indication: MEMORY IMPAIRMENT
     Dosage: FREQUENCY: EARLY/ BEFORE SLEEPING
  8. CLONAZEPAM. [Concomitant]
     Active Substance: CLONAZEPAM
     Indication: AGITATION
  9. DEPAKENE [Suspect]
     Active Substance: VALPROIC ACID
     Indication: EPILEPSY
     Dosage: FREQUENCY: MORNING/ MIDDAY/ NIGHT
     Route: 065
     Dates: start: 2008
  10. DEPAKENE [Suspect]
     Active Substance: VALPROIC ACID
     Indication: ANXIETY
  11. VALPROIC ACID. [Concomitant]
     Active Substance: VALPROIC ACID
     Indication: AGITATION
  12. BUPROPION HYDROCHLORIDE. [Concomitant]
     Active Substance: BUPROPION HYDROCHLORIDE
     Indication: DEPRESSION
     Dates: start: 2013
  13. VENLAFAXINE [Concomitant]
     Active Substance: VENLAFAXINE HYDROCHLORIDE
  14. TOPIRAMATE ACCORD [Concomitant]
     Active Substance: TOPIRAMATE
     Indication: PRODUCT USED FOR UNKNOWN INDICATION
  15. TOPIRAMATE ACCORD [Concomitant]
     Active Substance: TOPIRAMATE
     Dosage: SOMETIMES PATIENT TAKES JUST ^1^ PER DAY
  16. VENLAFAXINE [Concomitant]
     Active Substance: VENLAFAXINE HYDROCHLORIDE
     Indication: PRODUCT USED FOR UNKNOWN INDICATION
     Dates: start: 20181126

REACTIONS (9)
  - Suicidal ideation [Not Recovered/Not Resolved]
  - Product use in unapproved indication [Unknown]
  - Seizure [Recovering/Resolving]
  - Weight decreased [Unknown]
  - Hyperhidrosis [Not Recovered/Not Resolved]
  - Somnolence [Not Recovered/Not Resolved]
  - Dizziness [Not Recovered/Not Resolved]
  - Crying [Not Recovered/Not Resolved]
  - Alcohol use disorder [Recovered/Resolved]

NARRATIVE: CASE EVENT DATE: 2008
